FAERS Safety Report 9874962 (Version 2)
Quarter: 2015Q1

REPORT INFORMATION
  Report Type: Other
  Country: US (occurrence: US)
  Receive Date: 20140206
  Receipt Date: 20150209
  Transmission Date: 20150721
  Serious: No
  Sender: FDA-Public Use
  Company Number: US-ACORDA-ACO_36046_2013

PATIENT
  Age: 51 Year
  Sex: Male
  Weight: 65.76 kg

DRUGS (4)
  1. AMPYRA [Suspect]
     Active Substance: DALFAMPRIDINE
     Indication: GAIT DISTURBANCE
     Dosage: 10 MG, Q 12 HRS
     Route: 048
     Dates: start: 2012, end: 20130330
  2. ANTIDEPRESSANTS [Concomitant]
     Active Substance: UNSPECIFIED INGREDIENT
     Indication: DEPRESSION
     Dosage: UNK
     Route: 065
  3. OTHER THERAPEUTIC PRODUCTS (MS MEDICATION) [Concomitant]
     Indication: MULTIPLE SCLEROSIS
     Dosage: UNK
     Route: 065
  4. AMPYRA [Suspect]
     Active Substance: DALFAMPRIDINE
     Dosage: 10 MG, BID
     Route: 065
     Dates: start: 20140101

REACTIONS (8)
  - Drug dose omission [Unknown]
  - Feeling abnormal [Recovered/Resolved]
  - Drug ineffective [Unknown]
  - Adverse drug reaction [Recovered/Resolved]
  - Gait disturbance [Recovered/Resolved]
  - Nephrolithiasis [Recovered/Resolved]
  - Gait disturbance [Recovered/Resolved]
  - Blood urine present [Recovered/Resolved]

NARRATIVE: CASE EVENT DATE: 2012
